FAERS Safety Report 8779370 (Version 1)
Quarter: 2012Q4

REPORT INFORMATION
  Report Type: 
  Country: US (occurrence: US)
  Receive Date: 20120912
  Receipt Date: 20120912
  Transmission Date: 20130627
  Serious: Yes (Death, Other)
  Sender: FDA-Public Use
  Company Number: US-ROXANE LABORATORIES, INC.-2012-EU-04401GD

PATIENT
  Age: 72 Year
  Sex: Male

DRUGS (2)
  1. CODEINE [Suspect]
  2. VANCOMYCIN [Suspect]
     Indication: PNEUMONIA

REACTIONS (6)
  - Hypotension [Fatal]
  - Serotonin syndrome [Unknown]
  - Hepatic failure [Recovered/Resolved]
  - Confusional state [Recovered/Resolved]
  - Diarrhoea [Recovered/Resolved]
  - Agitation [Recovered/Resolved]
